FAERS Safety Report 9817141 (Version 1)
Quarter: 2014Q1

REPORT INFORMATION
  Report Type: Spontaneous
  Country: BR (occurrence: BR)
  Receive Date: 20140114
  Receipt Date: 20140114
  Transmission Date: 20141002
  Serious: Yes (Other)
  Sender: FDA-Public Use
  Company Number: BR-PFIZER INC-2014009234

PATIENT
  Age: 68 Year
  Sex: Female
  Weight: 48 kg

DRUGS (2)
  1. ALDACTONE [Suspect]
     Indication: OVARIAN CANCER
     Dosage: UNK
     Route: 048
     Dates: start: 2012
  2. FRONTAL [Concomitant]
     Indication: ANXIETY
     Dosage: UNK
     Route: 048
     Dates: start: 2012

REACTIONS (4)
  - Metastasis [Unknown]
  - Adnexal torsion [Unknown]
  - Malignant ascites [Unknown]
  - Off label use [Unknown]
